FAERS Safety Report 17617958 (Version 1)
Quarter: 2020Q2

REPORT INFORMATION
  Report Type: Spontaneous
  Country: US (occurrence: US)
  Receive Date: 20200402
  Receipt Date: 20200402
  Transmission Date: 20200713
  Serious: No
  Sender: FDA-Public Use
  Company Number: US-ROCHE-2353761

PATIENT
  Sex: Female
  Weight: 40 kg

DRUGS (1)
  1. ERIVEDGE [Suspect]
     Active Substance: VISMODEGIB
     Indication: BASAL CELL CARCINOMA
     Route: 048
     Dates: start: 20170101

REACTIONS (6)
  - Weight decreased [Unknown]
  - Ageusia [Recovering/Resolving]
  - Dysphagia [Unknown]
  - Weight gain poor [Unknown]
  - Insomnia [Unknown]
  - Asthenia [Unknown]
